FAERS Safety Report 20336865 (Version 2)
Quarter: 2022Q2

REPORT INFORMATION
  Report Type: Other
  Country: IN (occurrence: None)
  Receive Date: 20220114
  Receipt Date: 20220422
  Transmission Date: 20220720
  Serious: Yes (Other)
  Sender: FDA-Public Use
  Company Number: IN-ROCHE-3001626

PATIENT
  Sex: Female

DRUGS (1)
  1. TECENTRIQ [Suspect]
     Active Substance: ATEZOLIZUMAB
     Indication: Ovarian cancer
     Route: 041

REACTIONS (1)
  - COVID-19 [Unknown]
